FAERS Safety Report 21768851 (Version 3)
Quarter: 2023Q4

REPORT INFORMATION
  Report Type: Spontaneous
  Country: AT (occurrence: AT)
  Receive Date: 20221222
  Receipt Date: 20231030
  Transmission Date: 20240110
  Serious: Yes (Hospitalization, Other)
  Sender: FDA-Public Use
  Company Number: AT-SERVIER-S22012826

PATIENT
  Age: 78 Year
  Sex: Male

DRUGS (7)
  1. LONSURF [Suspect]
     Active Substance: TIPIRACIL HYDROCHLORIDE\TRIFLURIDINE
     Indication: Colon cancer
     Dosage: 50 MG BID (35MG/M2), ON DAYS 1-5 AND 8-12 OF A 28-DAY-CYCLE
     Route: 048
     Dates: start: 20200323, end: 202004
  2. LONSURF [Suspect]
     Active Substance: TIPIRACIL HYDROCHLORIDE\TRIFLURIDINE
     Dosage: 40 MG, BID (CYCLE 3)
     Route: 048
     Dates: start: 20200518, end: 202006
  3. LONSURF [Suspect]
     Active Substance: TIPIRACIL HYDROCHLORIDE\TRIFLURIDINE
     Dosage: 40 MG, BID (CYCLE 4)
     Route: 048
     Dates: start: 20200622, end: 202007
  4. LONSURF [Suspect]
     Active Substance: TIPIRACIL HYDROCHLORIDE\TRIFLURIDINE
     Dosage: 40 MG DAILY (CYCLE 5)?DAILY DOSE: 40 MILLIGRAM(S)
     Route: 048
     Dates: start: 20200806
  5. LONSURF [Suspect]
     Active Substance: TIPIRACIL HYDROCHLORIDE\TRIFLURIDINE
     Dosage: 40 MG BID
     Route: 048
     Dates: start: 20210712, end: 202202
  6. LONSURF [Suspect]
     Active Substance: TIPIRACIL HYDROCHLORIDE\TRIFLURIDINE
     Dosage: 40MG BID (25 MG/M2), ON DAYS 1-5 AND 8-12 OF A 28-DAY-CYCLE
     Route: 048
     Dates: start: 20221212
  7. PANTOPRAZOLE SODIUM [Concomitant]
     Active Substance: PANTOPRAZOLE SODIUM
     Indication: Product used for unknown indication
     Dosage: 40 MG, QD
     Route: 048

REACTIONS (27)
  - Neutropenia [Recovered/Resolved]
  - Anaemia [Recovered/Resolved]
  - Neutropenia [Recovered/Resolved]
  - Chronic obstructive pulmonary disease [Recovered/Resolved]
  - Anaemia [Recovering/Resolving]
  - Fatigue [Recovered/Resolved]
  - Neutropenia [Recovered/Resolved]
  - Polyneuropathy [Recovered/Resolved]
  - Alopecia [Recovered/Resolved]
  - Fatigue [Recovered/Resolved]
  - Anaemia [Not Recovered/Not Resolved]
  - Anaemia [Recovering/Resolving]
  - Anaemia [Not Recovered/Not Resolved]
  - Neutropenia [Recovered/Resolved]
  - Anaemia [Recovered/Resolved]
  - Blood lactate dehydrogenase increased [Unknown]
  - Folate deficiency [Unknown]
  - Anaemia [Recovered/Resolved]
  - Productive cough [Unknown]
  - Malaise [Unknown]
  - General physical health deterioration [Unknown]
  - Neutropenia [Recovered/Resolved]
  - Anaemia [Recovering/Resolving]
  - Dyspnoea [Unknown]
  - Tumour thrombosis [Unknown]
  - Disease progression [Unknown]
  - Neutropenia [Unknown]

NARRATIVE: CASE EVENT DATE: 20200415
